FAERS Safety Report 18117096 (Version 1)
Quarter: 2020Q3

REPORT INFORMATION
  Report Type: Spontaneous
  Country: US (occurrence: US)
  Receive Date: 20200805
  Receipt Date: 20200805
  Transmission Date: 20201103
  Serious: Yes (Hospitalization)
  Sender: FDA-Public Use
  Company Number: NVSC2020US217162

PATIENT
  Age: 49 Year
  Sex: Female

DRUGS (4)
  1. PERTUZUMAB. [Concomitant]
     Active Substance: PERTUZUMAB
     Indication: BREAST CANCER STAGE II
     Dosage: 420 MG, Q3W
     Route: 065
  2. TRASTUZUMAB. [Concomitant]
     Active Substance: TRASTUZUMAB
     Indication: BREAST CANCER STAGE II
     Dosage: 6 MG/KG, Q3W
     Route: 065
  3. CARBOPLATIN. [Concomitant]
     Active Substance: CARBOPLATIN
     Indication: BREAST CANCER STAGE II
     Dosage: UNK UNK, Q3W (6 MG/ML/MIN)
     Route: 065
  4. DOCETAXEL. [Suspect]
     Active Substance: DOCETAXEL
     Indication: BREAST CANCER STAGE II
     Dosage: 75 MG/M2, Q3W
     Route: 065

REACTIONS (1)
  - Myositis [Recovered/Resolved]
